FAERS Safety Report 5362750-2 (Version None)
Quarter: 2007Q2

REPORT INFORMATION
  Report Type: 
  Country: None (occurrence: None)
  Receive Date: 20070530
  Receipt Date: 20070322
  Transmission Date: 20071010
  Serious: No
  Sender: FDA-Public Use
  Company Number: 2007PV032178

PATIENT
  Age: 57 Year
  Sex: Female

DRUGS (3)
  1. BYETTA [Suspect]
     Indication: DIABETES MELLITUS NON-INSULIN-DEPENDENT
     Dosage: 5 MCG;BID;SC
     Route: 058
     Dates: start: 20070314
  2. METFORMIN HCL [Concomitant]
  3. CORICIDIN [Concomitant]

REACTIONS (3)
  - INJECTION SITE HAEMORRHAGE [None]
  - NASAL CONGESTION [None]
  - PRODUCTIVE COUGH [None]
